FAERS Safety Report 5479146-5 (Version None)
Quarter: 2007Q4

REPORT INFORMATION
  Report Type: 
  Country: None (occurrence: None)
  Receive Date: 20071008
  Receipt Date: 20070928
  Transmission Date: 20080405
  Serious: Yes (Hospitalization)
  Sender: FDA-Public Use
  Company Number: PHHO2007US16309

PATIENT
  Age: 76 Year
  Sex: Male
  Weight: 86.3 kg

DRUGS (9)
  1. NATEGLINIDE [Suspect]
     Indication: GLUCOSE TOLERANCE IMPAIRED
     Dosage: LEVEL 1
     Route: 048
     Dates: start: 20031129
  2. NATEGLINIDE [Suspect]
     Dosage: LEVEL 2
     Route: 048
  3. VALSARTAN [Suspect]
     Indication: CARDIOVASCULAR DISORDER
     Dosage: LEVEL 1
     Route: 048
     Dates: start: 20031129
  4. VALSARTAN [Suspect]
     Dosage: LEVEL 2
     Route: 048
  5. COUMADIN [Concomitant]
  6. CLONIDINE [Concomitant]
  7. METFORMIN HCL [Concomitant]
  8. TOPROL-XL [Concomitant]
  9. CRESTOR [Concomitant]

REACTIONS (10)
  - ABDOMINAL PAIN [None]
  - BLOOD UREA INCREASED [None]
  - DIARRHOEA [None]
  - DIZZINESS [None]
  - FALL [None]
  - GASTROENTERITIS [None]
  - NECK PAIN [None]
  - PRESYNCOPE [None]
  - URINARY TRACT INFECTION [None]
  - VOMITING [None]
